FAERS Safety Report 5571260-9 (Version None)
Quarter: 2007Q4

REPORT INFORMATION
  Report Type: 
  Country: None (occurrence: None)
  Receive Date: 20071221
  Receipt Date: 20070402
  Transmission Date: 20080405
  Serious: No
  Sender: FDA-Public Use
  Company Number: A0645602A

PATIENT
  Age: 72 Year
  Sex: Male

DRUGS (5)
  1. FLONASE [Suspect]
     Dosage: 50MCG PER DAY
     Route: 045
     Dates: start: 20070326
  2. DIOVAN [Concomitant]
  3. HYDROCHLOROTHIAZIDE [Concomitant]
  4. ASPIRIN [Concomitant]
  5. ADVAIR DISKUS 100/50 [Concomitant]

REACTIONS (1)
  - RHINORRHOEA [None]
